FAERS Safety Report 18674543 (Version 1)
Quarter: 2020Q4

REPORT INFORMATION
  Report Type: Report from Study
  Country: None (occurrence: US)
  Receive Date: 20201228
  Receipt Date: 20201228
  Transmission Date: 20210114
  Serious: Yes (Other)
  Sender: FDA-Public Use
  Company Number: US-ABBVIE-20K-163-3708318-00

PATIENT
  Age: 50 Year
  Sex: Female

DRUGS (2)
  1. HUMIRA [Suspect]
     Active Substance: ADALIMUMAB
     Indication: PSORIATIC ARTHROPATHY
     Route: 058
  2. HUMIRA [Suspect]
     Active Substance: ADALIMUMAB
     Indication: RHEUMATOID ARTHRITIS

REACTIONS (6)
  - Nasopharyngitis [Unknown]
  - Injection site pain [Not Recovered/Not Resolved]
  - Systemic lupus erythematosus [Unknown]
  - Off label use [Not Recovered/Not Resolved]
  - Feeling jittery [Not Recovered/Not Resolved]
  - Chills [Not Recovered/Not Resolved]

NARRATIVE: CASE EVENT DATE: 20201225
